FAERS Safety Report 6900650-4 (Version None)
Quarter: 2010Q3

REPORT INFORMATION
  Report Type: 
  Country: None (occurrence: None)
  Receive Date: 20100730
  Receipt Date: 20100721
  Transmission Date: 20110219
  Serious: Yes (Death)
  Sender: FDA-Public Use
  Company Number: 2010MA001101

PATIENT
  Age: 63 Year
  Sex: Female

DRUGS (2)
  1. TRAMADOL HYDROCHLORIDE [Suspect]
  2. CITALOPRAM HYDROBROMIDE [Suspect]

REACTIONS (1)
  - MULTIPLE DRUG OVERDOSE [None]
